FAERS Safety Report 7554278-6 (Version None)
Quarter: 2011Q2

REPORT INFORMATION
  Report Type: 
  Country: None (occurrence: None)
  Receive Date: 20110617
  Receipt Date: 20110607
  Transmission Date: 20111010
  Serious: Yes (Hospitalization)
  Sender: FDA-Public Use
  Company Number: IT-ELI_LILLY_AND_COMPANY-IT201101003868

PATIENT
  Sex: Male
  Weight: 55 kg

DRUGS (8)
  1. PEMETREXED [Suspect]
     Indication: HEAD AND NECK CANCER
     Dosage: 500 MG/M2, DAY 1 EVERY 21 DAYS
     Route: 042
     Dates: start: 20101217
  2. CETUXIMAB [Suspect]
     Dosage: 250 MG/M2, WEEKLY
     Route: 042
  3. VITAMIN B-12 [Concomitant]
     Indication: PROPHYLAXIS
     Dosage: UNK, UNKNOWN
     Route: 065
     Dates: start: 20101206
  4. FOLIC ACID [Concomitant]
     Indication: PROPHYLAXIS
     Dosage: UNK, UNKNOWN
     Route: 065
     Dates: start: 20101206
  5. CISPLATIN [Suspect]
     Dosage: 37.5 MG/M2, EVERY 21 DAYS
     Route: 042
  6. CETUXIMAB [Suspect]
     Indication: HEAD AND NECK CANCER
     Dosage: 400 MG/M2, LOADING DOSE DAY 1 CYCLE 1
     Route: 042
     Dates: start: 20101217, end: 20101217
  7. CISPLATIN [Suspect]
     Indication: HEAD AND NECK CANCER
     Dosage: 75 MG/M2, DAY 1 EVERY 21 DAYS
     Route: 042
     Dates: start: 20101217, end: 20110107
  8. DEXAMETHASONE [Concomitant]
     Indication: PROPHYLAXIS
     Dosage: UNK, UNKNOWN
     Route: 065
     Dates: start: 20101210

REACTIONS (5)
  - FANCONI SYNDROME [None]
  - HYPOTENSION [None]
  - PSEUDOMONAL SEPSIS [None]
  - PERFORMANCE STATUS DECREASED [None]
  - STAPHYLOCOCCAL SEPSIS [None]
